FAERS Safety Report 7932960-6 (Version None)
Quarter: 2011Q4

REPORT INFORMATION
  Report Type: 
  Country: None (occurrence: None)
  Receive Date: 20111121
  Receipt Date: 20111121
  Transmission Date: 20120403
  Serious: Yes (Hospitalization)
  Sender: FDA-Public Use
  Company Number: None

PATIENT
  Sex: Female
  Weight: 61.7 kg

DRUGS (2)
  1. TAXOL [Suspect]
     Dosage: 270 MG
  2. CARBOPLATIN [Suspect]
     Dosage: 520 MG

REACTIONS (5)
  - CELLULITIS [None]
  - THROMBOCYTOPENIA [None]
  - ANAEMIA [None]
  - ABSCESS LIMB [None]
  - SKIN ULCER [None]
